FAERS Safety Report 9317072 (Version 1)
Quarter: 2013Q2

REPORT INFORMATION
  Report Type: Spontaneous
  Country: US (occurrence: None)
  Receive Date: 20130524
  Receipt Date: 20130524
  Transmission Date: 20140414
  Serious: Yes (Hospitalization, Other)
  Sender: FDA-Public Use
  Company Number: JPI-P-031957

PATIENT
  Age: 42 Year
  Sex: Female

DRUGS (1)
  1. XYREM [Suspect]
     Indication: CATAPLEXY
     Dosage: 4.5 GM (2.25. GM,2 IN 1 D)
     Route: 048
     Dates: start: 20070913, end: 2007

REACTIONS (3)
  - Cerebrovascular accident [None]
  - Migraine [None]
  - Reflexes abnormal [None]
